FAERS Safety Report 19321033 (Version 1)
Quarter: 2021Q2

REPORT INFORMATION
  Report Type: Report from Study
  Country: US (occurrence: US)
  Receive Date: 20210527
  Receipt Date: 20210527
  Transmission Date: 20210717
  Serious: Yes (Other)
  Sender: FDA-Public Use
  Company Number: US-JNJFOC-20210553624

PATIENT
  Sex: Female

DRUGS (1)
  1. SPRAVATO [Suspect]
     Active Substance: ESKETAMINE
     Indication: DEPRESSION
     Dosage: 84 MG, TOTAL 8 DOSES
     Dates: start: 20210129, end: 20210504

REACTIONS (4)
  - Depression [Unknown]
  - Complication of pregnancy [Recovered/Resolved]
  - Abortion [Recovered/Resolved]
  - Exposure during pregnancy [Recovered/Resolved]
